FAERS Safety Report 4757707-6 (Version None)
Quarter: 2005Q3

REPORT INFORMATION
  Report Type: 
  Country: None (occurrence: None)
  Receive Date: 20050831
  Receipt Date: 20050823
  Transmission Date: 20060218
  Serious: Yes (Hospitalization, Other)
  Sender: FDA-Public Use
  Company Number: PHBS2005JP12418

PATIENT
  Age: 83 Year
  Sex: Female

DRUGS (9)
  1. DIOVAN [Suspect]
     Indication: HYPERTENSION
     Dosage: 80 MG, QD
     Route: 048
     Dates: start: 20050715
  2. OMEPRAZOLE [Concomitant]
     Dosage: 20 MG, UNK
     Route: 048
  3. ASPIRIN [Concomitant]
     Dosage: 10 MG, UNK
     Route: 048
  4. SIGMART [Concomitant]
     Dosage: 5 MG, UNK
     Route: 048
  5. TANADOPA [Concomitant]
     Route: 048
  6. ALLOPURINOL [Concomitant]
     Dosage: 100 MG, UNK
     Route: 048
  7. LASIX [Concomitant]
     Dosage: 20 MG, UNK
     Route: 048
  8. ALUMINUM HYDROXIDE AND MAGNESIUM TRISILICATE [Concomitant]
     Dosage: 10.8 G, UNK
     Route: 048
  9. LEBENIN [Concomitant]
     Dosage: 9 G, UNK
     Route: 048

REACTIONS (1)
  - INTERSTITIAL LUNG DISEASE [None]
